FAERS Safety Report 5234231-8 (Version None)
Quarter: 2007Q1

REPORT INFORMATION
  Report Type: 
  Country: None (occurrence: None)
  Receive Date: 20070209
  Receipt Date: 20070129
  Transmission Date: 20070707
  Serious: Yes (Hospitalization)
  Sender: FDA-Public Use
  Company Number: PHRM2007FR00664

PATIENT
  Age: 51 Year
  Sex: Female
  Weight: 75 kg

DRUGS (7)
  1. LOZOL [Suspect]
     Dosage: 1 DF, QD
     Route: 048
  2. LEVONORGESTREL AND ETHINYL ESTRADIOL [Suspect]
     Dosage: 1 DF, QD
     Route: 048
     Dates: end: 20050521
  3. LANTUS [Concomitant]
     Indication: DIABETES MELLITUS NON-INSULIN-DEPENDENT
     Dosage: 76 UI/DAY
  4. COTAREG [Suspect]
     Indication: HYPERTENSION
     Dosage: 1 DF, QD
     Route: 048
  5. LEVOTHYROXINE SODIUM [Suspect]
     Dosage: 150 DF, QD
     Route: 048
     Dates: start: 20020101
  6. GLIMEPIRIDE [Suspect]
     Indication: DIABETES MELLITUS NON-INSULIN-DEPENDENT
     Dosage: 6 MG, QD
     Route: 048
  7. TAHOR [Suspect]
     Indication: HYPERCHOLESTEROLAEMIA
     Dosage: 10 MG, QD
     Route: 048

REACTIONS (1)
  - CEREBROVASCULAR ACCIDENT [None]
